FAERS Safety Report 6463837-3 (Version None)
Quarter: 2009Q4

REPORT INFORMATION
  Report Type: 
  Country: None (occurrence: None)
  Receive Date: 20091130
  Receipt Date: 20091130
  Transmission Date: 20100525
  Serious: Yes (Life-Threatening)
  Sender: FDA-Public Use
  Company Number: None

PATIENT
  Age: 63 Year
  Sex: Male

DRUGS (1)
  1. MORPHINE [Suspect]
     Indication: PAIN
     Dosage: 2 MG ONCE IV
     Route: 042
     Dates: start: 20091124, end: 20091124

REACTIONS (3)
  - BRADYCARDIA [None]
  - PULSE ABSENT [None]
  - UNRESPONSIVE TO STIMULI [None]
